FAERS Safety Report 4641798-7 (Version None)
Quarter: 2005Q2

REPORT INFORMATION
  Report Type: 
  Country: None (occurrence: None)
  Receive Date: 20050420
  Receipt Date: 20050401
  Transmission Date: 20051028
  Serious: Yes (Other)
  Sender: FDA-Public Use
  Company Number: USA040361071

PATIENT
  Age: 51 Year
  Sex: Female
  Weight: 57 kg

DRUGS (1)
  1. HUMATROPE [Suspect]
     Dates: start: 20030301, end: 20041201

REACTIONS (6)
  - ABDOMINAL DISTENSION [None]
  - BACK DISORDER [None]
  - BACK PAIN [None]
  - THYROID DISORDER [None]
  - URINARY RETENTION [None]
  - WEIGHT INCREASED [None]
